FAERS Safety Report 5372742-5 (Version None)
Quarter: 2007Q2

REPORT INFORMATION
  Report Type: 
  Country: None (occurrence: None)
  Receive Date: 20070627
  Receipt Date: 20070619
  Transmission Date: 20071010
  Serious: Yes (Other)
  Sender: FDA-Public Use
  Company Number: HR-PFIZER INC-2007041420

PATIENT
  Sex: Male

DRUGS (1)
  1. ZELDOX (CAPSULES) [Suspect]
     Indication: ACUTE PSYCHOSIS
     Route: 048

REACTIONS (2)
  - DYSTONIA [None]
  - OCULOGYRATION [None]
